FAERS Safety Report 16122286 (Version 2)
Quarter: 2019Q1

REPORT INFORMATION
  Report Type: Spontaneous
  Country: BR (occurrence: BR)
  Receive Date: 20190327
  Receipt Date: 20190328
  Transmission Date: 20190418
  Serious: No
  Sender: FDA-Public Use
  Company Number: BR-TOLMAR, INC.-2019BR002992

PATIENT

DRUGS (2)
  1. ELIGARD [Suspect]
     Active Substance: LEUPROLIDE ACETATE
     Indication: PROSTATE CANCER METASTATIC
     Dosage: 22.5 MG, CYCLIC
     Route: 058
     Dates: start: 201710
  2. ABIRATERONE. [Concomitant]
     Active Substance: ABIRATERONE ACETATE
     Indication: PROSTATE CANCER METASTATIC
     Dosage: UNK
     Dates: start: 201710

REACTIONS (5)
  - Loss of libido [Recovering/Resolving]
  - Muscle fatigue [Recovering/Resolving]
  - Muscle atrophy [Recovering/Resolving]
  - Hot flush [Recovering/Resolving]
  - Osteopenia [Recovering/Resolving]

NARRATIVE: CASE EVENT DATE: 20171020
